FAERS Safety Report 17967207 (Version 1)
Quarter: 2020Q3

REPORT INFORMATION
  Report Type: Spontaneous
  Country: US (occurrence: US)
  Receive Date: 20200701
  Receipt Date: 20200701
  Transmission Date: 20201103
  Serious: Yes (Hospitalization)
  Sender: FDA-Public Use
  Company Number: None

PATIENT
  Age: 49 Year
  Sex: Male
  Weight: 128.6 kg

DRUGS (3)
  1. DARATUMUMAB (791647) [Suspect]
     Active Substance: DARATUMUMAB
     Dates: end: 20191011
  2. LENALIDOMIDE (CC?5013) [Suspect]
     Active Substance: LENALIDOMIDE
     Dates: end: 20191011
  3. DEXAMETHASONE. [Suspect]
     Active Substance: DEXAMETHASONE
     Dates: end: 20191011

REACTIONS (8)
  - Pain [None]
  - Nausea [None]
  - Formication [None]
  - Cough [None]
  - Chest pain [None]
  - Heart rate increased [None]
  - Blood pressure increased [None]
  - Tachycardia [None]

NARRATIVE: CASE EVENT DATE: 20191011
